FAERS Safety Report 23153266 (Version 2)
Quarter: 2023Q4

REPORT INFORMATION
  Report Type: Spontaneous
  Country: IN (occurrence: IN)
  Receive Date: 20231107
  Receipt Date: 20231219
  Transmission Date: 20240110
  Serious: Yes (Hospitalization, Other)
  Sender: FDA-Public Use
  Company Number: IN-CIPLA LTD.-2023IN06949

PATIENT

DRUGS (6)
  1. TESTOSTERONE [Suspect]
     Active Substance: TESTOSTERONE
     Indication: Steroid therapy
     Dosage: UNK
     Route: 065
  2. METFORMIN [Concomitant]
     Active Substance: METFORMIN HYDROCHLORIDE
     Indication: Diabetes mellitus
     Dosage: 500 MILLIGRAM, BID
     Route: 065
  3. RIFAMPIN [Concomitant]
     Active Substance: RIFAMPIN
     Indication: Pulmonary tuberculosis
     Dosage: 1 DOSAGE FORM, QD (FOUR TABLETS DAILY IN THE MORNING 30 MIN BEFORE FOOD OR 2 HR AFTER THE FOOD)
     Route: 065
  4. PYRAZINAMIDE [Concomitant]
     Active Substance: PYRAZINAMIDE
     Indication: Pulmonary tuberculosis
     Dosage: 1 DOSAGE FORM, QD (FOUR TABLETS DAILY IN THE MORNING 30 MIN BEFORE FOOD OR 2 HR AFTER THE FOOD)
     Route: 065
  5. ISONIAZID [Concomitant]
     Active Substance: ISONIAZID
     Indication: Pulmonary tuberculosis
     Dosage: 1 DOSAGE FORM, QD (FOUR TABLETS DAILY IN THE MORNING 30 MIN BEFORE FOOD OR 2 HR AFTER THE FOOD)
     Route: 065
  6. ETHAMBUTOL [Concomitant]
     Active Substance: ETHAMBUTOL HYDROCHLORIDE
     Indication: Pulmonary tuberculosis
     Dosage: 1 DOSAGE FORM, QD (FOUR TABLETS DAILY IN THE MORNING 30 MIN BEFORE FOOD OR 2 HR AFTER THE FOOD)
     Route: 065

REACTIONS (2)
  - Cushing^s syndrome [Recovered/Resolved]
  - Intentional product misuse [Unknown]
